FAERS Safety Report 6416489-2 (Version None)
Quarter: 2009Q4

REPORT INFORMATION
  Report Type: 
  Country: None (occurrence: None)
  Receive Date: 20091022
  Receipt Date: 20091014
  Transmission Date: 20100525
  Serious: Yes (Hospitalization)
  Sender: FDA-Public Use
  Company Number: 2009AL006578

PATIENT
  Age: 37 Year
  Sex: Male

DRUGS (5)
  1. NAPROXEN [Suspect]
     Indication: SUICIDE ATTEMPT
  2. LORAZEPAM [Suspect]
     Indication: SUICIDE ATTEMPT
  3. OXAZEPAM [Suspect]
     Indication: SUICIDE ATTEMPT
  4. BACLOFEN [Suspect]
     Indication: SUICIDE ATTEMPT
  5. ETHANOL [Concomitant]

REACTIONS (6)
  - ALCOHOL USE [None]
  - ASPARTATE AMINOTRANSFERASE INCREASED [None]
  - GAMMA-GLUTAMYLTRANSFERASE INCREASED [None]
  - HYPERBILIRUBINAEMIA [None]
  - LABORATORY TEST INTERFERENCE [None]
  - SUICIDE ATTEMPT [None]
